FAERS Safety Report 21204496 (Version 1)
Quarter: 2022Q3

REPORT INFORMATION
  Report Type: Spontaneous
  Country: FR (occurrence: FR)
  Receive Date: 20220812
  Receipt Date: 20220812
  Transmission Date: 20221027
  Serious: Yes (Hospitalization)
  Sender: FDA-Public Use
  Company Number: None

PATIENT
  Age: 79 Year
  Sex: Female
  Weight: 73.3 kg

DRUGS (7)
  1. KETOPROFEN [Suspect]
     Active Substance: KETOPROFEN
     Indication: Crystal arthropathy
     Dosage: UNIT DOSE: 200 MG, FREQUENCY TIME-1 DAY, DURATION-3 DAYS
     Route: 065
     Dates: start: 20210922, end: 20210925
  2. AMOXICILLIN [Suspect]
     Active Substance: AMOXICILLIN
     Indication: Arthritis bacterial
     Dosage: UNIT DOSE: 3 G, FREQUENCY TIME-1 DAY, DURATION-1 DAYS
     Dates: start: 20210917, end: 20210918
  3. GENTAMICIN [Suspect]
     Active Substance: GENTAMICIN
     Indication: Arthritis bacterial
     Dosage: UNIT DOSE: 240 MG, FREQUENCY TIME-1 DAY, DURATION-2 DAYS
     Dates: start: 20210918, end: 20210920
  4. CLOXACILLIN SODIUM [Suspect]
     Active Substance: CLOXACILLIN SODIUM
     Indication: Arthritis bacterial
     Dosage: UNIT DOSE: 12 G, FREQUENCY TIME-1 DAY, DURATION-7 DAYS
     Dates: start: 20210918, end: 20210925
  5. LOVENOX [Concomitant]
     Active Substance: ENOXAPARIN SODIUM
     Indication: Product used for unknown indication
     Dosage: UNIT DOSE: 1 DF, FREQUENCY TIME-1 DAY, DURATION-21 DAYS
     Dates: start: 20210917, end: 20211008
  6. TEMESTA [Concomitant]
     Indication: Product used for unknown indication
     Dosage: FORM STRENGTH 1 MG, SCORED TABLET, UNIT DOSE: 1 MG, FREQUENCY TIME-1 DAY
     Dates: start: 20210917
  7. ESOMEPRAZOLE [Concomitant]
     Active Substance: ESOMEPRAZOLE
     Indication: Product used for unknown indication
     Dosage: UNIT DOSE: 20 MG, FREQUENCY TIME-1 DAY, DURATION-19 DAYS
     Dates: start: 20210922, end: 20211011

REACTIONS (1)
  - Cutaneous vasculitis [Recovered/Resolved]

NARRATIVE: CASE EVENT DATE: 20210922
